FAERS Safety Report 8455385-6 (Version None)
Quarter: 2012Q2

REPORT INFORMATION
  Report Type: 
  Country: None (occurrence: None)
  Receive Date: 20120614
  Receipt Date: 20120530
  Transmission Date: 20120825
  Serious: Yes (Other)
  Sender: FDA-Public Use
  Company Number: ADE12-037

PATIENT
  Age: 66 Year
  Sex: Male
  Weight: 103 kg

DRUGS (2)
  1. HEPARIN SODIUM INJECTION [Suspect]
     Indication: CATHETERISATION CARDIAC
     Dosage: INTRAVENOUS; 5,000 UNITS
     Dates: start: 20110511
  2. HEPARIN SODIUM INJECTION [Suspect]
     Indication: CATHETERISATION CARDIAC
     Dosage: 3,000 UNITS, 3,000 UNITS
     Dates: start: 20110511

REACTIONS (1)
  - DRUG EFFECT DECREASED [None]
